FAERS Safety Report 6403560-4 (Version None)
Quarter: 2009Q4

REPORT INFORMATION
  Report Type: 
  Country: None (occurrence: None)
  Receive Date: 20091016
  Receipt Date: 20091009
  Transmission Date: 20100525
  Serious: Yes (Hospitalization)
  Sender: FDA-Public Use
  Company Number: ES-ASTRAZENECA-2009SE19790

PATIENT
  Age: 81 Year
  Sex: Female

DRUGS (3)
  1. TENORMIN [Suspect]
     Indication: MYOCARDIAL ISCHAEMIA
     Route: 048
     Dates: start: 20080101, end: 20090113
  2. MASDIL RETARD [Interacting]
     Indication: MYOCARDIAL ISCHAEMIA
     Route: 048
     Dates: start: 20090112, end: 20090113
  3. ALDACTONE [Concomitant]
     Indication: MYOCARDIAL ISCHAEMIA
     Route: 048
     Dates: end: 20090113

REACTIONS (1)
  - ATRIOVENTRICULAR BLOCK COMPLETE [None]
